FAERS Safety Report 7265878-5 (Version None)
Quarter: 2011Q1

REPORT INFORMATION
  Report Type: 
  Country: None (occurrence: None)
  Receive Date: 20110131
  Receipt Date: 20110121
  Transmission Date: 20110831
  Serious: Yes (Hospitalization)
  Sender: FDA-Public Use
  Company Number: B0686301A

PATIENT
  Sex: Female

DRUGS (2)
  1. AUGMENTIN [Suspect]
     Dosage: 2TAB PER DAY
     Route: 048
     Dates: start: 20101111, end: 20101112
  2. IBRUPROFEN [Suspect]
     Dosage: 400MG PER DAY
     Route: 048
     Dates: start: 20101112, end: 20101112

REACTIONS (3)
  - ANGIOEDEMA [None]
  - SENSORY DISTURBANCE [None]
  - PRURITUS [None]
